FAERS Safety Report 9479221 (Version 2)
Quarter: 2013Q4

REPORT INFORMATION
  Report Type: Spontaneous
  Country: BR (occurrence: BR)
  Receive Date: 20130827
  Receipt Date: 20131030
  Transmission Date: 20140711
  Serious: Yes (Hospitalization)
  Sender: FDA-Public Use
  Company Number: BR-B.I. PHARMACEUTICALS,INC./RIDGEFIELD-2013-BR-00945BR

PATIENT
  Age: 64 Year
  Sex: Female

DRUGS (6)
  1. PRADAXA [Suspect]
     Indication: ATRIAL FIBRILLATION
     Dosage: 300 MG
     Route: 048
  2. SINVASTATINA [Concomitant]
  3. CARVEDILOL [Concomitant]
     Dosage: 50 MG
  4. AAS [Concomitant]
  5. LOSARTANA [Concomitant]
     Dosage: 50 MG
  6. RITMONORM [Concomitant]
     Dosage: 600 MG

REACTIONS (1)
  - Transaminases increased [Recovered/Resolved]
